FAERS Safety Report 6573422-0 (Version None)
Quarter: 2010Q1

REPORT INFORMATION
  Report Type: 
  Country: None (occurrence: None)
  Receive Date: 20100208
  Receipt Date: 20100204
  Transmission Date: 20100710
  Serious: Yes (Life-Threatening)
  Sender: FDA-Public Use
  Company Number: IT-ASTRAZENECA-2010SE00251

PATIENT
  Age: 17491 Day
  Sex: Female

DRUGS (4)
  1. MERREM [Suspect]
     Indication: BRONCHOPNEUMONIA
     Route: 042
     Dates: start: 20091127, end: 20091211
  2. TEICOPLANINE [Concomitant]
     Dosage: 600 MG
     Route: 042
  3. LEVOFLOXACIN [Concomitant]
     Dosage: 1 G
     Route: 042
  4. FLUCONAZOLE [Concomitant]
     Dosage: 400 MG
     Route: 042

REACTIONS (4)
  - ANAEMIA [None]
  - ERYTHEMA [None]
  - LEUKOPENIA [None]
  - THROMBOCYTOPENIA [None]
